FAERS Safety Report 13134324 (Version 2)
Quarter: 2017Q1

REPORT INFORMATION
  Report Type: Spontaneous
  Country: JP (occurrence: JP)
  Receive Date: 20170120
  Receipt Date: 20170321
  Transmission Date: 20170428
  Serious: Yes (Other)
  Sender: FDA-Public Use
  Company Number: JP-ASTRAZENECA-2017SE04516

PATIENT
  Age: 81 Year
  Sex: Female

DRUGS (2)
  1. GEFITINIB [Suspect]
     Active Substance: GEFITINIB
     Indication: LUNG ADENOCARCINOMA
     Route: 048
  2. PEMETREXED [Concomitant]
     Active Substance: PEMETREXED

REACTIONS (2)
  - Malignant neoplasm progression [Unknown]
  - Malignant transformation [Unknown]
